FAERS Safety Report 4798200-4 (Version None)
Quarter: 2005Q4

REPORT INFORMATION
  Report Type: 
  Country: None (occurrence: None)
  Receive Date: 20051014
  Receipt Date: 20050711
  Transmission Date: 20060501
  Serious: Yes (Hospitalization, Other)
  Sender: FDA-Public Use
  Company Number: 2005PK01217

PATIENT
  Age: 3151 Day
  Sex: Male
  Weight: 40 kg

DRUGS (4)
  1. SEROQUEL [Suspect]
     Indication: ATTENTION DEFICIT/HYPERACTIVITY DISORDER
     Route: 048
     Dates: start: 20050315
  2. SEROQUEL [Suspect]
     Route: 048
     Dates: start: 20050520, end: 20050715
  3. DIPIPERON [Concomitant]
     Indication: ATTENTION DEFICIT/HYPERACTIVITY DISORDER
     Route: 048
     Dates: start: 20050315
  4. DIPIPERON [Concomitant]
     Route: 048
     Dates: start: 20050526, end: 20050725

REACTIONS (1)
  - LEUKOPENIA [None]
